FAERS Safety Report 9279350 (Version 1)
Quarter: 2013Q2

REPORT INFORMATION
  Report Type: Spontaneous
  Country: US (occurrence: US)
  Receive Date: 20130508
  Receipt Date: 20130508
  Transmission Date: 20140414
  Serious: Yes (Other)
  Sender: FDA-Public Use
  Company Number: US-B.I. PHARMACEUTICALS,INC./RIDGEFIELD-2013-BI-11876BP

PATIENT
  Sex: Female

DRUGS (10)
  1. TRADJENTA [Suspect]
     Indication: DIABETES MELLITUS
     Dosage: 5 MG
     Route: 048
     Dates: start: 201207
  2. ASPIRIN [Concomitant]
     Dosage: 325 MG
     Route: 048
  3. FUROSEMIDE [Concomitant]
     Indication: FLUID RETENTION
  4. CARVEDILOL [Concomitant]
     Dosage: 12.5 MG
     Route: 048
  5. ADRIAMYCIN [Concomitant]
     Indication: BREAST CANCER
     Dates: end: 201208
  6. RAMIPRIL [Concomitant]
     Dosage: 5 MG
     Route: 048
  7. GLUCOVANCE [Concomitant]
     Indication: DIABETES MELLITUS
     Route: 048
  8. LEVOXYL [Concomitant]
     Indication: HYPOTHYROIDISM
     Dosage: 137 MCG
     Route: 048
  9. CYTOXAN [Concomitant]
     Indication: BREAST CANCER
     Dates: end: 201208
  10. SIMVASTATIN [Concomitant]
     Indication: HYPERLIPIDAEMIA
     Dosage: 40 MG
     Route: 048

REACTIONS (2)
  - Cardiac failure congestive [Not Recovered/Not Resolved]
  - Ejection fraction decreased [Not Recovered/Not Resolved]
